FAERS Safety Report 21938645 (Version 1)
Quarter: 2023Q1

REPORT INFORMATION
  Report Type: Report from Study
  Country: US (occurrence: US)
  Receive Date: 20230201
  Receipt Date: 20230201
  Transmission Date: 20230418
  Serious: Yes (Other)
  Sender: FDA-Public Use
  Company Number: US-EXELIXIS-CABO-22048224

PATIENT
  Sex: Female

DRUGS (19)
  1. CABOMETYX [Suspect]
     Active Substance: CABOZANTINIB S-MALATE
     Indication: Renal cancer
     Dosage: 60 MG, QD
     Route: 048
  2. CABOMETYX [Suspect]
     Active Substance: CABOZANTINIB S-MALATE
     Indication: Metastases to lymph nodes
  3. GAS RELIEF [Concomitant]
     Active Substance: DIMETHICONE
  4. HYDROMORPHONE [Concomitant]
     Active Substance: HYDROMORPHONE
  5. MIRALAX [Concomitant]
     Active Substance: POLYETHYLENE GLYCOL 3350
  6. PROCHLORPERAZINE MALEATE [Concomitant]
     Active Substance: PROCHLORPERAZINE MALEATE
  7. VITAMIN C [Concomitant]
     Active Substance: ASCORBIC ACID
  8. ANASTROZOLE [Concomitant]
     Active Substance: ANASTROZOLE
  9. DIPHENHYDRAMINE [Concomitant]
     Active Substance: DIPHENHYDRAMINE
  10. PROBIOTICS NOS [Concomitant]
     Active Substance: PROBIOTICS NOS
  11. TYLENOL [Concomitant]
     Active Substance: ACETAMINOPHEN
  12. ATENOLOL [Concomitant]
     Active Substance: ATENOLOL
  13. FOLIC ACID [Concomitant]
     Active Substance: FOLIC ACID
  14. SIMVASTATIN [Concomitant]
     Active Substance: SIMVASTATIN
  15. ULORIC [Concomitant]
     Active Substance: FEBUXOSTAT
  16. VITAMIN B12 [Concomitant]
     Active Substance: CYANOCOBALAMIN
  17. LEVOTHYROXINE [Concomitant]
     Active Substance: LEVOTHYROXINE
  18. OMEPRAZOLE [Concomitant]
     Active Substance: OMEPRAZOLE
  19. ZOFRAN [Concomitant]
     Active Substance: ONDANSETRON HYDROCHLORIDE

REACTIONS (5)
  - Weight decreased [Not Recovered/Not Resolved]
  - Ageusia [Not Recovered/Not Resolved]
  - Feeding disorder [Not Recovered/Not Resolved]
  - Skin disorder [Recovered/Resolved]
  - Decreased appetite [Not Recovered/Not Resolved]
